FAERS Safety Report 10466408 (Version 1)
Quarter: 2014Q3

REPORT INFORMATION
  Report Type: Spontaneous
  Country: US (occurrence: None)
  Receive Date: 20140919
  Receipt Date: 20140919
  Transmission Date: 20150326
  Serious: Yes (Hospitalization)
  Sender: FDA-Public Use
  Company Number: None

PATIENT
  Age: 25 Year
  Sex: Female
  Weight: 96 kg

DRUGS (1)
  1. NEXPLANON [Suspect]
     Active Substance: ETONOGESTREL
     Indication: CONTRACEPTION
     Dosage: INPLANT 3 YEARS

REACTIONS (12)
  - Diarrhoea [None]
  - Breast pain [None]
  - Depression [None]
  - Migraine [None]
  - Headache [None]
  - Fatigue [None]
  - Burning sensation [None]
  - Malaise [None]
  - Insomnia [None]
  - Cold sweat [None]
  - Implant site pain [None]
  - Hyperhidrosis [None]
